FAERS Safety Report 25832323 (Version 1)
Quarter: 2025Q3

REPORT INFORMATION
  Report Type: Spontaneous
  Country: US (occurrence: None)
  Receive Date: 20250921
  Receipt Date: 20250921
  Transmission Date: 20251020
  Serious: Yes (Hospitalization)
  Sender: FDA-CTU
  Company Number: None

PATIENT
  Age: 49 Year
  Sex: Female

DRUGS (2)
  1. ADALIMUMAB-ADAZ [Suspect]
     Active Substance: ADALIMUMAB-ADAZ
     Indication: Hidradenitis
     Dosage: OTHER FREQUENCY : EVERY 7 DAYS;?
     Route: 058
     Dates: start: 20240816
  2. HYRIMOZ [Concomitant]
     Active Substance: ADALIMUMAB-ADAZ

REACTIONS (6)
  - Condition aggravated [None]
  - Hidradenitis [None]
  - Skin ulcer [None]
  - Skin haemorrhage [None]
  - Haematological infection [None]
  - Intentional dose omission [None]

NARRATIVE: CASE EVENT DATE: 20250620
